FAERS Safety Report 7433412-2 (Version None)
Quarter: 2011Q2

REPORT INFORMATION
  Report Type: 
  Country: None (occurrence: None)
  Receive Date: 20110422
  Receipt Date: 20110419
  Transmission Date: 20111010
  Serious: Yes (Life-Threatening, Hospitalization)
  Sender: FDA-Public Use
  Company Number: RU-ELI_LILLY_AND_COMPANY-RU201011007101

PATIENT
  Sex: Female

DRUGS (2)
  1. HUMALOG [Suspect]
     Indication: TYPE 1 DIABETES MELLITUS
     Dosage: 8 U, 2/D
     Dates: start: 20091102
  2. HUMULIN N [Suspect]
     Indication: TYPE 1 DIABETES MELLITUS
     Dosage: 16 U, 2/D
     Dates: start: 19960401

REACTIONS (6)
  - SUBCLAVIAN ARTERY THROMBOSIS [None]
  - DRUG EXPOSURE DURING PREGNANCY [None]
  - BACTERIURIA IN PREGNANCY [None]
  - MEDICAL DEVICE COMPLICATION [None]
  - RENAL FAILURE ACUTE [None]
  - HYPOGLYCAEMIA [None]
